FAERS Safety Report 6656136-8 (Version None)
Quarter: 2010Q1

REPORT INFORMATION
  Report Type: 
  Country: None (occurrence: None)
  Receive Date: 20100329
  Receipt Date: 20100326
  Transmission Date: 20100710
  Serious: Yes (Hospitalization)
  Sender: FDA-Public Use
  Company Number: DE-SANOFI-AVENTIS-A04200901347

PATIENT
  Age: 58 Year
  Sex: Male
  Weight: 88 kg

DRUGS (8)
  1. OXALIPLATIN [Suspect]
     Route: 041
     Dates: start: 20090720, end: 20090720
  2. OXALIPLATIN [Suspect]
     Route: 041
     Dates: start: 20090101, end: 20090101
  3. FLUOROURACIL [Suspect]
     Route: 041
     Dates: start: 20090720, end: 20090722
  4. FLUOROURACIL [Suspect]
     Route: 041
     Dates: start: 20090101, end: 20090101
  5. FOLINIC ACID [Suspect]
     Route: 041
     Dates: start: 20090720, end: 20090721
  6. FOLINIC ACID [Suspect]
     Route: 041
     Dates: start: 20090101, end: 20090101
  7. FORTECORTIN [Concomitant]
     Indication: PREMEDICATION
     Route: 042
     Dates: start: 20090720, end: 20090720
  8. KEVATRIL [Concomitant]
     Indication: PREMEDICATION
     Route: 042
     Dates: start: 20090720, end: 20090720

REACTIONS (8)
  - DEHYDRATION [None]
  - DIABETIC KETOACIDOTIC HYPERGLYCAEMIC COMA [None]
  - DYSPNOEA [None]
  - GENERAL PHYSICAL HEALTH DETERIORATION [None]
  - POLYDIPSIA [None]
  - POLYURIA [None]
  - TACHYCARDIA [None]
  - TYPE 1 DIABETES MELLITUS [None]
